FAERS Safety Report 8300040-6 (Version None)
Quarter: 2012Q2

REPORT INFORMATION
  Report Type: 
  Country: None (occurrence: None)
  Receive Date: 20120420
  Receipt Date: 20120417
  Transmission Date: 20120825
  Serious: No
  Sender: FDA-Public Use
  Company Number: US-PFIZER INC-2012096264

PATIENT
  Sex: Male
  Weight: 68.027 kg

DRUGS (6)
  1. ATIVAN [Concomitant]
     Indication: ANXIETY
     Dosage: UNK
  2. FACTOR IX [Concomitant]
     Indication: HAEMOPHILIA
     Dosage: UNK
  3. MORPHINE SULFATE [Concomitant]
     Indication: FIBROMYALGIA
     Dosage: UNK
  4. CHANTIX [Suspect]
     Indication: SMOKING CESSATION THERAPY
     Dosage: 0.5 MG, DAILY
  5. DOXYCIN [Concomitant]
     Indication: SLEEP DISORDER
     Dosage: UNK
  6. DURAGESIC-100 [Concomitant]
     Indication: FIBROMYALGIA
     Dosage: UNK

REACTIONS (1)
  - NAUSEA [None]
